FAERS Safety Report 7734920-7 (Version None)
Quarter: 2011Q3

REPORT INFORMATION
  Report Type: 
  Country: None (occurrence: None)
  Receive Date: 20110907
  Receipt Date: 20110902
  Transmission Date: 20111222
  Serious: Yes (Death)
  Sender: FDA-Public Use
  Company Number: PHEH2011US03213

PATIENT

DRUGS (1)
  1. EXFORGE [Suspect]
     Dosage: 1 DF, QD (160 MG VALS AND 5 MG AMLO)

REACTIONS (1)
  - DEATH [None]
